FAERS Safety Report 11095865 (Version 1)
Quarter: 2015Q2

REPORT INFORMATION
  Report Type: Spontaneous
  Country: US (occurrence: US)
  Receive Date: 20150507
  Receipt Date: 20150507
  Transmission Date: 20150821
  Serious: No
  Sender: FDA-Public Use
  Company Number: US-ASTRAZENECA-2015SE38347

PATIENT
  Sex: Male
  Weight: 90.7 kg

DRUGS (2)
  1. BLOOD PRESSURE PILL (NAME UNKNOWN) [Concomitant]
     Indication: BLOOD PRESSURE ABNORMAL
  2. BYDUREON [Suspect]
     Active Substance: EXENATIDE
     Indication: TYPE 2 DIABETES MELLITUS
     Route: 058

REACTIONS (2)
  - Frustration [Unknown]
  - Drug dose omission [Unknown]
